FAERS Safety Report 14874735 (Version 1)
Quarter: 2018Q2

REPORT INFORMATION
  Report Type: Spontaneous
  Country: IN (occurrence: IN)
  Receive Date: 20180510
  Receipt Date: 20180510
  Transmission Date: 20180711
  Serious: Yes (Life-Threatening, Hospitalization)
  Sender: FDA-Public Use
  Company Number: IN-SA-2018SA121320

PATIENT
  Age: 33 Year
  Sex: Female
  Weight: 60 kg

DRUGS (2)
  1. CLEXANE [Suspect]
     Active Substance: ENOXAPARIN SODIUM
     Route: 058
     Dates: start: 20180404, end: 20180408
  2. PIPZO [Concomitant]
     Route: 065

REACTIONS (3)
  - Intra-abdominal haemorrhage [Recovered/Resolved]
  - Pain [Recovered/Resolved]
  - Intra-abdominal haematoma [Recovered/Resolved]
